FAERS Safety Report 13020920 (Version 1)
Quarter: 2016Q4

REPORT INFORMATION
  Report Type: Spontaneous
  Country: US (occurrence: US)
  Receive Date: 20161212
  Receipt Date: 20161212
  Transmission Date: 20170207
  Serious: No
  Sender: FDA-Public Use
  Company Number: None

PATIENT
  Age: 57 Year
  Sex: Female

DRUGS (1)
  1. IBRANCE [Suspect]
     Active Substance: PALBOCICLIB
     Indication: BREAST CANCER
     Dosage: 100MG DAILY 3 WEEKS ON/1 WEEK OFF  PO
     Route: 048
     Dates: start: 20160620

REACTIONS (4)
  - Productive cough [None]
  - White blood cell count decreased [None]
  - Chills [None]
  - Cough [None]

NARRATIVE: CASE EVENT DATE: 201611
